FAERS Safety Report 4815489-3 (Version None)
Quarter: 2005Q4

REPORT INFORMATION
  Report Type: 
  Country: None (occurrence: None)
  Receive Date: 20051028
  Receipt Date: 20051028
  Transmission Date: 20060501
  Serious: No
  Sender: FDA-Public Use
  Company Number: None

PATIENT
  Age: 44 Year
  Sex: Female
  Weight: 63.5036 kg

DRUGS (1)
  1. LEVAQUIN [Suspect]
     Indication: SINUSITIS
     Dosage: 750 MG QD PO
     Route: 048
     Dates: start: 20051019, end: 20051026

REACTIONS (3)
  - ARTHRALGIA [None]
  - MYALGIA [None]
  - NEUROPATHY PERIPHERAL [None]
